FAERS Safety Report 6625583-2 (Version None)
Quarter: 2010Q1

REPORT INFORMATION
  Report Type: 
  Country: None (occurrence: None)
  Receive Date: 20100305
  Receipt Date: 20100217
  Transmission Date: 20100710
  Serious: Yes (Other)
  Sender: FDA-Public Use
  Company Number: 2010S1000764

PATIENT
  Sex: Female

DRUGS (1)
  1. PHOSPHOSODA FLAVOR [Suspect]
     Indication: SURGERY
     Dosage: 90 ML; TOTAL; PO
     Route: 048
     Dates: start: 20080918, end: 20080918

REACTIONS (2)
  - HAEMODIALYSIS [None]
  - RENAL INJURY [None]
